FAERS Safety Report 4888837-6 (Version None)
Quarter: 2006Q1

REPORT INFORMATION
  Report Type: 
  Country: None (occurrence: None)
  Receive Date: 20060123
  Receipt Date: 20050620
  Transmission Date: 20060701
  Serious: Yes (Death, Hospitalization)
  Sender: FDA-Public Use
  Company Number: US-MERCK-0506USA02948

PATIENT
  Age: 59 Year
  Sex: Female
  Weight: 134 kg

DRUGS (11)
  1. VIOXX [Suspect]
     Indication: ARTHRITIS
     Route: 048
     Dates: end: 20031201
  2. VIOXX [Suspect]
     Indication: PAIN
     Route: 048
     Dates: end: 20031201
  3. LASIX [Concomitant]
     Route: 065
  4. AMBIEN [Concomitant]
     Route: 065
  5. VICODIN [Concomitant]
     Route: 065
  6. ALLOPURINOL [Concomitant]
     Route: 065
  7. VOLMAX [Concomitant]
     Route: 065
  8. INSULIN [Concomitant]
     Indication: DIABETES MELLITUS
     Route: 065
  9. TIAZAC [Concomitant]
     Route: 065
  10. MAXZIDE [Concomitant]
     Route: 065
  11. ATROVENT [Concomitant]
     Route: 055

REACTIONS (10)
  - ANAEMIA [None]
  - BREAST CANCER METASTATIC [None]
  - CARDIAC ARREST [None]
  - CHRONIC OBSTRUCTIVE PULMONARY DISEASE [None]
  - HYPERGLYCAEMIA [None]
  - LYMPHOEDEMA [None]
  - MALIGNANT PLEURAL EFFUSION [None]
  - OEDEMA PERIPHERAL [None]
  - PLEURAL EFFUSION [None]
  - RESPIRATORY FAILURE [None]
